FAERS Safety Report 7399948-8 (Version None)
Quarter: 2011Q1

REPORT INFORMATION
  Report Type: 
  Country: None (occurrence: None)
  Receive Date: 20110330
  Receipt Date: 20110321
  Transmission Date: 20110831
  Serious: Yes (Hospitalization, Disabling)
  Sender: FDA-Public Use
  Company Number: 2010SP046935

PATIENT
  Age: 40 Year
  Sex: Female
  Weight: 101.6057 kg

DRUGS (12)
  1. FLOVENT [Concomitant]
  2. PROZAC [Concomitant]
  3. ZYRTEC [Concomitant]
  4. SINGULAIR [Concomitant]
  5. COUMADIN [Suspect]
     Indication: PULMONARY EMBOLISM
     Dates: start: 20080920, end: 20100701
  6. ALBUTEROL [Concomitant]
  7. CALCIUM [Concomitant]
  8. NUVARING [Suspect]
     Indication: MENSTRUATION IRREGULAR
     Dates: start: 20070301, end: 20080915
  9. NUVARING [Suspect]
     Indication: DYSMENORRHOEA
     Dates: start: 20070301, end: 20080915
  10. NUVARING [Suspect]
     Indication: PREMENSTRUAL SYNDROME
     Dates: start: 20070301, end: 20080915
  11. NUVARING [Suspect]
     Indication: CONTRACEPTION
     Dates: start: 20070301, end: 20080915
  12. ZEGERID [Concomitant]

REACTIONS (10)
  - GASTROOESOPHAGEAL REFLUX DISEASE [None]
  - MOTION SICKNESS [None]
  - TOOTH ABSCESS [None]
  - CELLULITIS [None]
  - PSORIASIS [None]
  - GASTRIC POLYPS [None]
  - DUODENITIS [None]
  - PULMONARY EMBOLISM [None]
  - HAEMORRHAGE [None]
  - MULTIPLE INJURIES [None]
